FAERS Safety Report 8453409-3 (Version None)
Quarter: 2012Q2

REPORT INFORMATION
  Report Type: 
  Country: None (occurrence: None)
  Receive Date: 20120620
  Receipt Date: 20120515
  Transmission Date: 20120825
  Serious: No
  Sender: FDA-Public Use
  Company Number: US-VERTEX PHARMACEUTICALS INC.-AE-2012-007224

PATIENT
  Sex: Female

DRUGS (4)
  1. RIBAVIRIN [Concomitant]
     Indication: HEPATITIS C
     Route: 048
     Dates: start: 20120403
  2. PREVACID [Concomitant]
     Route: 048
  3. DIOVAN HCT [Concomitant]
     Route: 048
  4. INCIVEK [Suspect]
     Indication: HEPATITIS C
     Route: 048
     Dates: start: 20120403

REACTIONS (4)
  - ASTHENIA [None]
  - FATIGUE [None]
  - ANAEMIA [None]
  - WHITE BLOOD CELL COUNT DECREASED [None]
